FAERS Safety Report 17652461 (Version 2)
Quarter: 2020Q2

REPORT INFORMATION
  Report Type: Spontaneous
  Country: US (occurrence: US)
  Receive Date: 20200409
  Receipt Date: 20200413
  Transmission Date: 20200713
  Serious: Yes (Hospitalization)
  Sender: FDA-Public Use
  Company Number: US-PFIZER INC-2020147532

PATIENT
  Age: 80 Year
  Sex: Female
  Weight: 87.9 kg

DRUGS (7)
  1. VERAPAMIL HYDROCHLORIDE. [Concomitant]
     Active Substance: VERAPAMIL HYDROCHLORIDE
     Indication: HYPERTENSION
     Dosage: 200 MG, 1X/DAY (TAKE ONCE DAILY BY MOUTH)/ (TAKING FOR 5 YEARS OR LONGER )
     Route: 048
  2. ZIAC [BISOPROLOL FUMARATE;HYDROCHLOROTHIAZIDE] [Concomitant]
     Indication: BLOOD PRESSURE ABNORMAL
     Dosage: UNK UNK, 1X/DAY (12.5/6.25 MG; TAKE ONCE DAILY BY MOUTH)/ (TAKING FOR 5 YEARS OR LONGER )
     Route: 048
  3. LASIX [Concomitant]
     Active Substance: FUROSEMIDE
     Indication: FLUID RETENTION
     Dosage: 20 MG, 2X/DAY (20 MG; TAKE ONE TWICE DAILY BY MOUTH)/ (TAKING FOR 5 YEARS OR LONGER )
     Route: 048
  4. FISH OIL [Concomitant]
     Active Substance: FISH OIL
     Indication: DRY EYE
     Dosage: 1000 MG, DAILY (1000 MG; TAKE ONE DAILY BY MOUTH)/ (TAKING FOR 4 YEARS)
     Route: 048
  5. REVATIO [Suspect]
     Active Substance: SILDENAFIL CITRATE
     Indication: PULMONARY HYPERTENSION
     Dosage: 20 MG, 3X/DAY (TAKE ONE THREE TIMES DAILY BY MOUTH)
     Route: 048
  6. VITAMIN D [COLECALCIFEROL] [Concomitant]
     Active Substance: CHOLECALCIFEROL
     Indication: SUPPLEMENTATION THERAPY
     Dosage: 25 UG, DAILY
     Route: 048
  7. OMEPRAZOLE. [Concomitant]
     Active Substance: OMEPRAZOLE
     Indication: GASTROOESOPHAGEAL REFLUX DISEASE
     Dosage: 20 MG, 1X/DAY (20 MG; TAKE ONCE DAILY BY MOUTH)/ (TAKING FOR A LONG TIME)
     Route: 048

REACTIONS (5)
  - Cardiac disorder [Unknown]
  - Eye disorder [Unknown]
  - Heart rate increased [Not Recovered/Not Resolved]
  - Asthenia [Unknown]
  - Arthropathy [Unknown]
